FAERS Safety Report 10372660 (Version 2)
Quarter: 2014Q3

REPORT INFORMATION
  Report Type: Spontaneous
  Country: US (occurrence: US)
  Receive Date: 20140808
  Receipt Date: 20140808
  Transmission Date: 20150326
  Serious: No
  Sender: FDA-Public Use
  Company Number: US-BRISTOL-MYERS SQUIBB COMPANY-19201797

PATIENT
  Age: 73 Year
  Sex: Male
  Weight: 76.64 kg

DRUGS (14)
  1. BRIMONIDINE [Concomitant]
     Active Substance: BRIMONIDINE\BRIMONIDINE TARTRATE
  2. FUROSEMIDE. [Concomitant]
     Active Substance: FUROSEMIDE
  3. LISINOPRIL. [Concomitant]
     Active Substance: LISINOPRIL
  4. CLONAZEPAM. [Concomitant]
     Active Substance: CLONAZEPAM
  5. PRAVASTATIN SODIUM. [Concomitant]
     Active Substance: PRAVASTATIN SODIUM
  6. MULTIVITAMIN [Concomitant]
     Active Substance: VITAMINS
  7. SINEMET [Suspect]
     Active Substance: CARBIDOPA\LEVODOPA
  8. FINASTERIDE. [Concomitant]
     Active Substance: FINASTERIDE
  9. FISH OIL [Concomitant]
     Active Substance: FISH OIL
  10. GLUCOSAMINE [Concomitant]
     Active Substance: GLUCOSAMINE
  11. LORATADINE. [Concomitant]
     Active Substance: LORATADINE
  12. PRILOSEC [Concomitant]
     Active Substance: OMEPRAZOLE MAGNESIUM
  13. SPRYCEL [Suspect]
     Active Substance: DASATINIB
     Indication: CHRONIC MYELOID LEUKAEMIA
     Dosage: 1DF:1 TABS?JAN13?APR13
     Route: 048
     Dates: start: 201301
  14. VITAMIN B [Concomitant]
     Active Substance: VITAMIN B

REACTIONS (4)
  - Mood swings [Not Recovered/Not Resolved]
  - Dry skin [Not Recovered/Not Resolved]
  - Dyspnoea [Not Recovered/Not Resolved]
  - Anxiety [Not Recovered/Not Resolved]

NARRATIVE: CASE EVENT DATE: 20131223
